FAERS Safety Report 13105096 (Version 1)
Quarter: 2017Q1

REPORT INFORMATION
  Report Type: Spontaneous
  Country: US (occurrence: US)
  Receive Date: 20170111
  Receipt Date: 20170111
  Transmission Date: 20170428
  Serious: Yes (Other)
  Sender: FDA-Public Use
  Company Number: US-DRREDDYS-USA/USA/16/0086016

PATIENT
  Age: 4 Year
  Sex: Female

DRUGS (3)
  1. LETROZOLE TABLETS, USP 2.5 MG [Suspect]
     Active Substance: LETROZOLE
     Indication: ALBRIGHT^S DISEASE
     Route: 065
  2. LEUPROLIDE [Concomitant]
     Active Substance: LEUPROLIDE
     Indication: PRECOCIOUS PUBERTY
     Route: 065
  3. LETROZOLE TABLETS, USP 2.5 MG [Suspect]
     Active Substance: LETROZOLE
     Indication: PRECOCIOUS PUBERTY

REACTIONS (3)
  - Therapeutic response unexpected [Unknown]
  - Product use issue [Unknown]
  - Adnexal torsion [Unknown]
